FAERS Safety Report 9523016 (Version 1)
Quarter: 2013Q1

REPORT INFORMATION
  Report Type: Spontaneous
  Country: US (occurrence: None)
  Receive Date: 20130305
  Receipt Date: 20130305
  Transmission Date: 20140127
  Serious: Yes (Hospitalization)
  Sender: FDA-Public Use
  Company Number: 163-21880-12032964

PATIENT
  Age: 62 Year
  Sex: Male
  Weight: 79.92 kg

DRUGS (11)
  1. REVLIMID [Suspect]
     Indication: PLASMA CELL MYELOMA
     Dosage: 10 MG, DAILY X 21 DAYS, PO
     Route: 048
     Dates: start: 2008, end: 201203
  2. NEXIUM (ESOMEPRAZOLE) (UNKNOWN) [Concomitant]
  3. CYMBALTA (DULOXETINE HYDROCHLORIDE) (UNKNOWN) [Concomitant]
  4. OXYCONTIN (OXYCODONE HYDROCHLORIDE) (UNKNOWN) [Concomitant]
  5. LYRICA (PREAGBALIN) (UNKNOWN) [Concomitant]
  6. VALTREX (VALACICLOVIR HYDROCHLORIDE) (UNKNOWN) [Concomitant]
  7. FLUTICASONE (FLUTICASONE) (UNKNOWN) [Concomitant]
  8. PLAVIX (CLOPIDOGREL SULFATE0 (UNKNOWN) [Concomitant]
  9. ASPIRIN (ACETYLSALICYLIC ACID) (UNKNOWN) (ACETYLSALICYLIC ACID) [Concomitant]
  10. ZOCOR (SIMVASTATIN) (UNKNOWN) [Concomitant]
  11. METOPROLOL (METOPROLOL) (UNKNOWN) [Concomitant]

REACTIONS (1)
  - Pneumonia viral [None]
